FAERS Safety Report 13904969 (Version 1)
Quarter: 2017Q3

REPORT INFORMATION
  Report Type: Spontaneous
  Country: US (occurrence: None)
  Receive Date: 20170824
  Receipt Date: 20170824
  Transmission Date: 20171127
  Serious: No
  Sender: FDA-Public Use
  Company Number: None

PATIENT
  Age: 60 Year
  Sex: Male

DRUGS (1)
  1. IMATINIB MES [Suspect]
     Active Substance: IMATINIB MESYLATE
     Route: 048

REACTIONS (3)
  - Transaminases increased [None]
  - Neutropenia [None]
  - Drug intolerance [None]

NARRATIVE: CASE EVENT DATE: 20170816
